FAERS Safety Report 15815290 (Version 1)
Quarter: 2019Q1

REPORT INFORMATION
  Report Type: Spontaneous
  Country: DE (occurrence: DE)
  Receive Date: 20190112
  Receipt Date: 20190112
  Transmission Date: 20190417
  Serious: Yes (Congenital Anomaly)
  Sender: FDA-Public Use
  Company Number: DE-TEVA-2019-DE-997639

PATIENT
  Age: 0 Year
  Sex: Female
  Weight: 1.81 kg

DRUGS (1)
  1. PAROXETIN [Suspect]
     Active Substance: PAROXETINE HYDROCHLORIDE
     Indication: DEPRESSION
     Dosage: 30 [MG/ 2 TAGE ]/ UNTIL WEEK 6+1 30MG EVERY SECOND DAY, THEN 15MG EVERY SECOND DAY
     Route: 064

REACTIONS (2)
  - Foetal exposure during pregnancy [Unknown]
  - Atrial septal defect [Unknown]
